FAERS Safety Report 6595299-X (Version None)
Quarter: 2010Q1

REPORT INFORMATION
  Report Type: 
  Country: None (occurrence: None)
  Receive Date: 20100222
  Receipt Date: 20100217
  Transmission Date: 20100710
  Serious: Yes (Death, Hospitalization, Other)
  Sender: FDA-Public Use
  Company Number: US-BRISTOL-MYERS SQUIBB COMPANY-14964696

PATIENT
  Age: 77 Year
  Sex: Female

DRUGS (4)
  1. GLUCOPHAGE [Suspect]
     Indication: DIABETES MELLITUS
  2. NORVASC [Concomitant]
  3. CRESTOR [Concomitant]
  4. LIPITOR [Concomitant]

REACTIONS (3)
  - LUNG NEOPLASM MALIGNANT [None]
  - NEPHROLITHIASIS [None]
  - RENAL FAILURE [None]
